FAERS Safety Report 8226715-5 (Version None)
Quarter: 2012Q1

REPORT INFORMATION
  Report Type: 
  Country: None (occurrence: None)
  Receive Date: 20120322
  Receipt Date: 20120312
  Transmission Date: 20120608
  Serious: Yes (Hospitalization, Other)
  Sender: FDA-Public Use
  Company Number: US-BAYER-2011-091095

PATIENT
  Age: 29 Year
  Sex: Female
  Weight: 59 kg

DRUGS (6)
  1. FLUOXETINE [Concomitant]
     Indication: DEPRESSION
     Dosage: UNK
     Dates: start: 20060101
  2. ZYRTEC DUO [Concomitant]
     Indication: MULTIPLE ALLERGIES
     Dosage: UNK UNK, QD
     Dates: start: 20050101
  3. EXCEDRIN (MIGRAINE) [Concomitant]
     Indication: HEADACHE
     Dosage: UNK UNK, OW
     Dates: start: 20070101, end: 20100101
  4. YAZ [Suspect]
     Indication: CONTRACEPTION
     Dosage: UNK
     Dates: start: 20080701, end: 20091201
  5. MULTIVITAMIN PREPARATION + MINERAL SUPPLEMENT [Concomitant]
     Dosage: UNK
     Dates: start: 20070101, end: 20100101
  6. ALEVE (CAPLET) [Concomitant]
     Indication: PAIN
     Dosage: UNK
     Dates: start: 20010101, end: 20100101

REACTIONS (7)
  - CHOLELITHIASIS [None]
  - GALLBLADDER DISORDER [None]
  - EMOTIONAL DISTRESS [None]
  - INJURY [None]
  - ABDOMINAL PAIN [None]
  - PAIN [None]
  - CHOLECYSTITIS CHRONIC [None]
